FAERS Safety Report 17393126 (Version 1)
Quarter: 2020Q1

REPORT INFORMATION
  Report Type: Report from Study
  Country: CA (occurrence: CA)
  Receive Date: 20200208
  Receipt Date: 20200208
  Transmission Date: 20200409
  Serious: Yes (Hospitalization, Other)
  Sender: FDA-Public Use
  Company Number: CA-AMGEN-CANCT2020022006

PATIENT
  Age: 54 Year
  Sex: Female

DRUGS (4)
  1. AIMOVIG [Suspect]
     Active Substance: ERENUMAB-AOOE
     Indication: MIGRAINE
     Dosage: 70 MG (4 DOSES)
     Route: 065
     Dates: start: 20190701, end: 20191218
  2. PROPRANOLOL [Suspect]
     Active Substance: PROPRANOLOL HYDROCHLORIDE
     Indication: MIGRAINE
     Dosage: UNK
     Route: 065
     Dates: start: 201808, end: 201811
  3. AIMOVIG [Suspect]
     Active Substance: ERENUMAB-AOOE
     Dosage: 140 MG (1 DOSE)
     Route: 065
  4. TOPIRAMATE. [Suspect]
     Active Substance: TOPIRAMATE
     Indication: MIGRAINE
     Dosage: UNK
     Route: 065
     Dates: start: 201307, end: 201311

REACTIONS (13)
  - Dyspnoea [Unknown]
  - Carcinoid tumour pulmonary [Unknown]
  - Breast cyst [Unknown]
  - Nodule [Unknown]
  - Scar [Unknown]
  - Vertebral osteophyte [Unknown]
  - Vertebral foraminal stenosis [Unknown]
  - Facet joint syndrome [Unknown]
  - Chest pain [Unknown]
  - Drug ineffective [Unknown]
  - Cardiac disorder [Unknown]
  - Troponin increased [Unknown]
  - Migraine [Recovering/Resolving]

NARRATIVE: CASE EVENT DATE: 2013
